FAERS Safety Report 4607324-3 (Version None)
Quarter: 2005Q1

REPORT INFORMATION
  Report Type: 
  Country: None (occurrence: None)
  Receive Date: 20050311
  Receipt Date: 20050311
  Transmission Date: 20050727
  Serious: Yes (Death)
  Sender: FDA-Public Use
  Company Number: None

PATIENT
  Age: 41 Year
  Sex: Female
  Weight: 217.7266 kg

DRUGS (7)
  1. LOVENOX [Suspect]
     Indication: FIBRIN D DIMER
     Dosage: 40 MG DAILY SUBQ
     Route: 058
     Dates: start: 20031025, end: 20031103
  2. REC ANTIBIOTICS [Concomitant]
  3. IRON [Concomitant]
  4. PAIN MED [Concomitant]
  5. NAUSEA MED [Concomitant]
  6. HEART MEDS [Concomitant]
  7. LASIX [Concomitant]

REACTIONS (9)
  - CARDIO-RESPIRATORY ARREST [None]
  - DIARRHOEA [None]
  - DISSEMINATED INTRAVASCULAR COAGULATION [None]
  - HAEMATOCRIT DECREASED [None]
  - HAEMOGLOBIN DECREASED [None]
  - MEAN CELL HAEMOGLOBIN DECREASED [None]
  - RED BLOOD CELL COUNT DECREASED [None]
  - SEPSIS [None]
  - VOMITING [None]
